FAERS Safety Report 7444502-2 (Version None)
Quarter: 2011Q2

REPORT INFORMATION
  Report Type: 
  Country: None (occurrence: None)
  Receive Date: 20110427
  Receipt Date: 20110427
  Transmission Date: 20111010
  Serious: Yes (Hospitalization)
  Sender: FDA-Public Use
  Company Number: None

PATIENT
  Sex: Female
  Weight: 108.5 kg

DRUGS (1)
  1. MITOXANTRONE [Suspect]
     Indication: MULTIPLE SCLEROSIS
     Dosage: 26 MG ONCE IV
     Route: 042
     Dates: start: 20100818

REACTIONS (4)
  - STRIDOR [None]
  - SINUS TACHYCARDIA [None]
  - COUGH [None]
  - INFUSION RELATED REACTION [None]
